FAERS Safety Report 4328900-1 (Version None)
Quarter: 2004Q1

REPORT INFORMATION
  Report Type: 
  Country: None (occurrence: None)
  Receive Date: 20040329
  Receipt Date: 20040115
  Transmission Date: 20041129
  Serious: No
  Sender: FDA-Public Use
  Company Number: 04P-163-0247495-00

PATIENT
  Age: 45 Year
  Sex: Male
  Weight: 108.8633 kg

DRUGS (7)
  1. HUMIRA [Suspect]
     Indication: RHEUMATOID ARTHRITIS
     Dosage: 40 MG, 1 IN 2 WK, SUBCUTANEOUS
     Route: 058
     Dates: start: 20030101
  2. PREDNISONE [Concomitant]
  3. FAMOTIDINE [Concomitant]
  4. OMEPRAZOLE [Concomitant]
  5. CITALOPRAM HYDROBROMIDE [Concomitant]
  6. HYDROCODONE [Concomitant]
  7. ACETAMINOPHEN [Concomitant]

REACTIONS (1)
  - RASH [None]
